FAERS Safety Report 9265593 (Version 1)
Quarter: 2013Q2

REPORT INFORMATION
  Report Type: Spontaneous
  Country: IT (occurrence: IT)
  Receive Date: 20130501
  Receipt Date: 20130501
  Transmission Date: 20140414
  Serious: Yes (Other)
  Sender: FDA-Public Use
  Company Number: IT-009507513-1304ITA013968

PATIENT
  Age: 46 Year
  Sex: Female
  Weight: 100 kg

DRUGS (4)
  1. ESMERON [Suspect]
     Indication: INDUCTION OF ANAESTHESIA
     Dosage: 50 MG, TOTAL
     Route: 042
     Dates: start: 20130327, end: 20130327
  2. PROPOFOL FRESENIUS KABI [Suspect]
     Indication: INDUCTION OF ANAESTHESIA
     Dosage: 200 MG, QD, TOTAL
     Route: 042
     Dates: start: 20130327, end: 20130327
  3. MIDARINE [Suspect]
     Indication: INDUCTION OF ANAESTHESIA
     Dosage: 100 MG, QD, TOTAL
     Route: 042
     Dates: start: 20130327, end: 20130327
  4. CEFAMEZIN [Concomitant]
     Indication: ANTIBIOTIC PROPHYLAXIS
     Dosage: 2 G, QD, TOTAL
     Route: 042
     Dates: start: 20130327, end: 20130327

REACTIONS (2)
  - Hyperhidrosis [Recovered/Resolved]
  - Erythema [Recovered/Resolved]
